FAERS Safety Report 4901979-1 (Version None)
Quarter: 2006Q1

REPORT INFORMATION
  Report Type: 
  Country: None (occurrence: None)
  Receive Date: 20060206
  Receipt Date: 20050826
  Transmission Date: 20060701
  Serious: Yes (Death)
  Sender: FDA-Public Use
  Company Number: US-ROCHE-415654

PATIENT
  Age: 60 Year
  Sex: Female

DRUGS (3)
  1. CAPECITABINE [Suspect]
     Indication: BREAST CANCER
     Dosage: UNREPORTED FREQUENCY
     Route: 048
     Dates: start: 20050517, end: 20050531
  2. LIPITOR [Concomitant]
     Dates: start: 20011018
  3. TAMBOCOR [Concomitant]
     Dates: start: 20030319

REACTIONS (6)
  - HYPOTENSION [None]
  - KLEBSIELLA INFECTION [None]
  - MENTAL STATUS CHANGES [None]
  - RENAL FAILURE [None]
  - SEPSIS [None]
  - TACHYPNOEA [None]
